FAERS Safety Report 24366129 (Version 1)
Quarter: 2024Q3

REPORT INFORMATION
  Report Type: Spontaneous
  Country: US (occurrence: None)
  Receive Date: 20240925
  Receipt Date: 20240925
  Transmission Date: 20241017
  Serious: Yes (Hospitalization)
  Sender: Public
  Company Number: None

PATIENT
  Sex: Male

DRUGS (1)
  1. PROCRIT [Suspect]
     Active Substance: ERYTHROPOIETIN
     Indication: Anaemia
     Dosage: FREQUENCY : WEEKLY;?
     Route: 042

REACTIONS (4)
  - Renal transplant [None]
  - Nephrolithiasis [None]
  - Urinary tract infection [None]
  - Sepsis [None]
